FAERS Safety Report 5962672-X (Version None)
Quarter: 2008Q4

REPORT INFORMATION
  Report Type: 
  Country: None (occurrence: None)
  Receive Date: 20081124
  Receipt Date: 20081110
  Transmission Date: 20090506
  Serious: Yes (Hospitalization, Disabling, Other)
  Sender: FDA-Public Use
  Company Number: US-ROCHE-578395

PATIENT
  Sex: Female
  Weight: 64 kg

DRUGS (11)
  1. ACCUTANE [Suspect]
     Route: 048
     Dates: start: 19970120, end: 19970131
  2. ACCUTANE [Suspect]
     Route: 048
     Dates: start: 19970203, end: 19970429
  3. CELLCEPT [Suspect]
     Indication: IMMUNOSUPPRESSION
     Dosage: DOSE DECREASED IN JUN2005
     Route: 048
     Dates: start: 20040103, end: 20050601
  4. CELLCEPT [Suspect]
     Dosage: DISCONTINUED DUE TO WBC DECREASE
     Route: 048
     Dates: start: 20050601
  5. VALCYTE [Suspect]
     Route: 048
     Dates: start: 20040103
  6. OVCON-35 [Concomitant]
  7. FLOLAN [Concomitant]
     Dates: start: 19990721
  8. STEROID NOS [Concomitant]
     Indication: IMMUNOSUPPRESSION
  9. SIMULECT [Concomitant]
     Indication: IMMUNOSUPPRESSION
     Dates: start: 20040103
  10. PROGRAF [Concomitant]
     Indication: IMMUNOSUPPRESSION
     Dates: start: 19990721
  11. PROGRAF [Concomitant]
     Dates: start: 20040103, end: 20050601

REACTIONS (28)
  - ADRENAL HAEMORRHAGE [None]
  - APHTHOUS STOMATITIS [None]
  - BLOOD CHOLESTEROL INCREASED [None]
  - BLOOD CREATININE INCREASED [None]
  - BLOOD TRIGLYCERIDES INCREASED [None]
  - BRONCHOPULMONARY ASPERGILLOSIS [None]
  - CATHETER SITE INFECTION [None]
  - DEPRESSION [None]
  - FURUNCLE [None]
  - GASTROENTERITIS VIRAL [None]
  - GASTROINTESTINAL HAEMORRHAGE [None]
  - HEADACHE [None]
  - INTUSSUSCEPTION [None]
  - LUNG INFECTION [None]
  - LUNG TRANSPLANT REJECTION [None]
  - MICROCYTIC ANAEMIA [None]
  - MYCOBACTERIUM AVIUM COMPLEX INFECTION [None]
  - POST PROCEDURAL COMPLICATION [None]
  - PULMONARY ARTERIAL HYPERTENSION [None]
  - RASH [None]
  - RASH PAPULAR [None]
  - RENAL FAILURE ACUTE [None]
  - RIGHT VENTRICULAR HYPERTROPHY [None]
  - SUICIDAL IDEATION [None]
  - TACHYCARDIA [None]
  - UPPER RESPIRATORY TRACT INFECTION [None]
  - VAGUS NERVE DISORDER [None]
  - WHITE BLOOD CELL COUNT DECREASED [None]
